FAERS Safety Report 21631904 (Version 1)
Quarter: 2022Q4

REPORT INFORMATION
  Report Type: Report from Study
  Country: US (occurrence: US)
  Receive Date: 20221123
  Receipt Date: 20221123
  Transmission Date: 20230112
  Serious: No
  Sender: FDA-Public Use
  Company Number: US-ABBVIE-22K-163-4530678-00

PATIENT
  Sex: Male

DRUGS (1)
  1. HUMIRA [Suspect]
     Active Substance: ADALIMUMAB
     Indication: Crohn^s disease
     Dosage: CITRATE FREE
     Route: 058

REACTIONS (6)
  - Pain [Unknown]
  - Coccydynia [Unknown]
  - Crohn^s disease [Not Recovered/Not Resolved]
  - Incorrect dose administered [Unknown]
  - Injection site haemorrhage [Recovered/Resolved]
  - Device malfunction [Unknown]
